FAERS Safety Report 24434393 (Version 1)
Quarter: 2024Q4

REPORT INFORMATION
  Report Type: Spontaneous
  Country: US (occurrence: US)
  Receive Date: 20241014
  Receipt Date: 20241014
  Transmission Date: 20250115
  Serious: No
  Sender: PFIZER
  Company Number: US-PFIZER INC-PV202400131643

PATIENT
  Sex: Male

DRUGS (2)
  1. CHANTIX [Interacting]
     Active Substance: VARENICLINE TARTRATE
     Dosage: UNK
  2. ZOLOFT [Interacting]
     Active Substance: SERTRALINE HYDROCHLORIDE
     Dosage: UNK

REACTIONS (2)
  - Drug interaction [Unknown]
  - Therapeutic response unexpected [Unknown]
